FAERS Safety Report 14556372 (Version 1)
Quarter: 2018Q1

REPORT INFORMATION
  Report Type: Other
  Country: BE (occurrence: BE)
  Receive Date: 20180221
  Receipt Date: 20180221
  Transmission Date: 20180509
  Serious: Yes (Hospitalization, Other)
  Sender: FDA-Public Use
  Company Number: BE-MACLEODS PHARMACEUTICALS US LTD-MAC2018010011

PATIENT

DRUGS (3)
  1. LORAZEPAM. [Concomitant]
     Active Substance: LORAZEPAM
     Indication: PRODUCT USED FOR UNKNOWN INDICATION
     Dosage: 2.5 MG, UNK
     Route: 065
  2. ARIPIPRAZOLE 15MG TABLET [Suspect]
     Active Substance: ARIPIPRAZOLE
     Indication: MAJOR DEPRESSION
     Dosage: 15 MG, UNK
     Route: 048
  3. ZOLPIDEM [Concomitant]
     Active Substance: ZOLPIDEM\ZOLPIDEM TARTRATE
     Indication: PRODUCT USED FOR UNKNOWN INDICATION
     Dosage: 10 MG, UNK
     Route: 065

REACTIONS (19)
  - Urinary incontinence [Unknown]
  - Pyrexia [Unknown]
  - Pneumonia [Unknown]
  - Malaise [Unknown]
  - Muscular weakness [Unknown]
  - Agitation [Recovered/Resolved]
  - Apathy [Unknown]
  - Anxiety [Recovered/Resolved]
  - Electrocardiogram QT prolonged [Unknown]
  - Weight decreased [Unknown]
  - Confusional state [Recovered/Resolved]
  - Dysphagia [Unknown]
  - Decreased appetite [Unknown]
  - Restlessness [Unknown]
  - Anal incontinence [Unknown]
  - Salivary hypersecretion [Unknown]
  - Mental disorder [Unknown]
  - Discomfort [Unknown]
  - Drug withdrawal syndrome [Unknown]
